FAERS Safety Report 7593608-6 (Version None)
Quarter: 2011Q3

REPORT INFORMATION
  Report Type: 
  Country: None (occurrence: None)
  Receive Date: 20110706
  Receipt Date: 20110701
  Transmission Date: 20111222
  Serious: Yes (Death)
  Sender: FDA-Public Use
  Company Number: PHHY2011US59017

PATIENT
  Age: 10 Year
  Sex: Female

DRUGS (1)
  1. METHYLPREDNISOLONE [Suspect]
     Indication: SERUM SICKNESS
     Dosage: 0.2 MG/KG, BID
     Route: 042

REACTIONS (26)
  - ABDOMINAL DISTENSION [None]
  - INTESTINAL INFARCTION [None]
  - ABDOMINAL WALL HAEMORRHAGE [None]
  - HEPATOMEGALY [None]
  - PLEURAL EFFUSION [None]
  - HEPATOSPLENOMEGALY [None]
  - SPLENIC INFARCTION [None]
  - PULMONARY EMBOLISM [None]
  - MULTI-ORGAN FAILURE [None]
  - ADRENAL HAEMORRHAGE [None]
  - ZYGOMYCOSIS [None]
  - HEPATIC INFARCTION [None]
  - OVARIAN HAEMORRHAGE [None]
  - FALLOPIAN TUBE DISORDER [None]
  - CARDIAC FAILURE [None]
  - RENAL INFARCT [None]
  - HYPOTENSION [None]
  - HYPOXIA [None]
  - POOR PERIPHERAL CIRCULATION [None]
  - ASCITES [None]
  - PERICARDIAL EFFUSION [None]
  - HEPATIC FAILURE [None]
  - RENAL FAILURE [None]
  - ANAEMIA [None]
  - EMBOLISM [None]
  - HAEMORRHAGE [None]
